FAERS Safety Report 5868239-6 (Version None)
Quarter: 2008Q3

REPORT INFORMATION
  Report Type: 
  Country: None (occurrence: None)
  Receive Date: 20080902
  Receipt Date: 20080821
  Transmission Date: 20090109
  Serious: Yes (Other)
  Sender: FDA-Public Use
  Company Number: US-PFIZER INC-2008070756

PATIENT
  Age: 30 Year
  Sex: Female

DRUGS (3)
  1. RELPAX [Suspect]
  2. MAXALT [Suspect]
     Indication: MIGRAINE
     Route: 048
  3. IMITREX [Suspect]

REACTIONS (2)
  - DRUG INEFFECTIVE [None]
  - ISCHAEMIC STROKE [None]
